FAERS Safety Report 26024002 (Version 1)
Quarter: 2025Q4

REPORT INFORMATION
  Report Type: Spontaneous
  Country: JP (occurrence: JP)
  Receive Date: 20251111
  Receipt Date: 20251111
  Transmission Date: 20260118
  Serious: Yes (Hospitalization, Other)
  Sender: SANDOZ
  Company Number: JP-SANDOZ-SDZ2025JP083123

PATIENT
  Age: 54 Year
  Sex: Male

DRUGS (2)
  1. ROSUVASTATIN [Suspect]
     Active Substance: ROSUVASTATIN
     Indication: Hyperlipidaemia
     Dosage: UNK
     Route: 065
  2. CYCLOSPORINE [Concomitant]
     Active Substance: CYCLOSPORINE
     Indication: Thrombotic thrombocytopenic purpura
     Dosage: LOW-DOSE
     Route: 065

REACTIONS (3)
  - Rhabdomyolysis [Recovering/Resolving]
  - Thrombotic thrombocytopenic purpura [Unknown]
  - Disease recurrence [Unknown]
